FAERS Safety Report 17121213 (Version 1)
Quarter: 2019Q4

REPORT INFORMATION
  Report Type: Spontaneous
  Country: US (occurrence: US)
  Receive Date: 20191205
  Receipt Date: 20191205
  Transmission Date: 20200122
  Serious: Yes (Disabling)
  Sender: FDA-Public Use
  Company Number: None

PATIENT
  Age: 77 Year
  Sex: Female
  Weight: 67.5 kg

DRUGS (9)
  1. BENEFIBER [Concomitant]
     Active Substance: STARCH, WHEAT
  2. METFORMIN [Concomitant]
     Active Substance: METFORMIN HYDROCHLORIDE
  3. LEVOTHYROXINE 75 MCG [Concomitant]
  4. DILTIAZEM XR 120 MG [Concomitant]
     Active Substance: DILTIAZEM
  5. METOPROLOL 50 MG [Concomitant]
     Active Substance: METOPROLOL
  6. GOOD SENSE CLEAR LAX [Concomitant]
     Active Substance: POLYETHYLENE GLYCOL 3350
     Indication: DIVERTICULITIS
     Route: 048
  7. KIRKLAND MATURE MULTIVITAMIN [Concomitant]
  8. ATORVASTATIN 40 MG [Concomitant]
     Active Substance: ATORVASTATIN
  9. PEPCID [Concomitant]
     Active Substance: FAMOTIDINE

REACTIONS (9)
  - Fatigue [None]
  - Ill-defined disorder [None]
  - Product impurity [None]
  - Manufacturing materials issue [None]
  - Dyspnoea [None]
  - Chest pain [None]
  - Headache [None]
  - Palpitations [None]
  - Condition aggravated [None]

NARRATIVE: CASE EVENT DATE: 20191015
